FAERS Safety Report 8422961-6 (Version None)
Quarter: 2012Q2

REPORT INFORMATION
  Report Type: 
  Country: None (occurrence: None)
  Receive Date: 20120608
  Receipt Date: 20120601
  Transmission Date: 20120825
  Serious: Yes (Other)
  Sender: FDA-Public Use
  Company Number: JP-VIIV HEALTHCARE LIMITED-B0805857A

PATIENT
  Sex: Female

DRUGS (5)
  1. EPIVIR [Suspect]
     Indication: HIV INFECTION
     Dosage: 2IUAX PER DAY
     Route: 048
     Dates: start: 20110929, end: 20111109
  2. COMBIVIR [Suspect]
     Dosage: 2IUAX PER DAY
     Route: 048
     Dates: start: 20111110
  3. KALETRA [Suspect]
     Indication: HIV INFECTION
     Dosage: 4IUAX PER DAY
     Route: 048
     Dates: start: 20110922
  4. COMBIVIR [Suspect]
     Indication: HIV INFECTION
     Dosage: 2IUAX PER DAY
     Route: 048
     Dates: start: 20110922, end: 20110928
  5. RETROVIR [Suspect]
     Indication: HIV INFECTION
     Dosage: 4IUAX PER DAY
     Route: 048
     Dates: start: 20110929, end: 20111109

REACTIONS (4)
  - ANAEMIA [None]
  - MATERNAL EXPOSURE DURING PREGNANCY [None]
  - DELIVERY [None]
  - CAESAREAN SECTION [None]
